FAERS Safety Report 7130713-2 (Version None)
Quarter: 2010Q4

REPORT INFORMATION
  Report Type: 
  Country: None (occurrence: None)
  Receive Date: 20101201
  Receipt Date: 20101112
  Transmission Date: 20110411
  Serious: Yes (Hospitalization)
  Sender: FDA-Public Use
  Company Number: BR-ROCHE-713347

PATIENT
  Sex: Female
  Weight: 53.5 kg

DRUGS (10)
  1. TRASTUZUMAB [Suspect]
     Dosage: DOSAGE FORM:INFUSION,FREQUENCY:21/21,LAST DOSE PRIOR TO SAE:02 SEP 2010.
     Route: 042
     Dates: start: 20100526, end: 20100922
  2. TRASTUZUMAB [Suspect]
     Route: 042
     Dates: start: 20100929
  3. PERTUZUMAB [Suspect]
     Dosage: DOSAGE FORM:INFUSION, FREQUENCY:21/21, DATE OF LAST DOSE PRIOR TO SAE: 02 SEP 2010
     Route: 042
     Dates: start: 20100526, end: 20100922
  4. PERTUZUMAB [Suspect]
     Route: 042
     Dates: start: 20100929
  5. CARBOPLATIN [Suspect]
     Dosage: DOSAGE FORM:INFUSION, FREQUENCY:21/21, DATE OF LAST DOSE PRIOR TO SAE:02 SEP 2010.
     Route: 042
     Dates: start: 20100526, end: 20100922
  6. CARBOPLATIN [Suspect]
     Route: 042
     Dates: start: 20100929
  7. DOCETAXEL [Suspect]
     Dosage: DOSAGE FORM:INFUSION,FREQUENCY:21/21, LAST DOSE PRIOR TO SAE: 02 SEP 2010
     Route: 042
     Dates: start: 20100526, end: 20100922
  8. DOCETAXEL [Suspect]
     Route: 042
     Dates: start: 20100929
  9. FILGRASTIM [Suspect]
     Indication: PROPHYLAXIS
     Route: 065
     Dates: start: 20101005, end: 20101010
  10. FILGRASTIM [Suspect]
     Route: 065
     Dates: start: 20101018, end: 20101018

REACTIONS (3)
  - EPISTAXIS [None]
  - FEBRILE NEUTROPENIA [None]
  - PLATELET COUNT DECREASED [None]
